FAERS Safety Report 20001494 (Version 7)
Quarter: 2022Q1

REPORT INFORMATION
  Report Type: Report from Study
  Country: AU (occurrence: AU)
  Receive Date: 20211027
  Receipt Date: 20220204
  Transmission Date: 20220423
  Serious: Yes (Hospitalization)
  Sender: FDA-Public Use
  Company Number: AU-ABBVIE-21K-008-4135779-00

PATIENT
  Sex: Male

DRUGS (3)
  1. CARBIDOPA\LEVODOPA [Suspect]
     Active Substance: CARBIDOPA\LEVODOPA
     Indication: Parkinson^s disease
     Dosage: 100ML GEL CASSETTE
     Route: 050
     Dates: start: 20151028
  2. CARBIDOPA\LEVODOPA [Suspect]
     Active Substance: CARBIDOPA\LEVODOPA
  3. LEVODOPA [Concomitant]
     Active Substance: LEVODOPA
     Indication: Parkinson^s disease
     Route: 048

REACTIONS (8)
  - Femur fracture [Unknown]
  - Device dislocation [Recovered/Resolved]
  - Embedded device [Not Recovered/Not Resolved]
  - Fall [Unknown]
  - Device dislocation [Not Recovered/Not Resolved]
  - Device occlusion [Not Recovered/Not Resolved]
  - Agitation [Recovering/Resolving]
  - Unintentional medical device removal [Not Recovered/Not Resolved]

NARRATIVE: CASE EVENT DATE: 20210101
